FAERS Safety Report 22006569 (Version 1)
Quarter: 2023Q1

REPORT INFORMATION
  Report Type: Spontaneous
  Country: US (occurrence: None)
  Receive Date: 20230216
  Receipt Date: 20230216
  Transmission Date: 20230417
  Serious: No
  Sender: FDA-Public Use
  Company Number: None

PATIENT
  Age: 78 Year
  Sex: Female
  Weight: 61.01 kg

DRUGS (15)
  1. VERZENIO [Suspect]
     Active Substance: ABEMACICLIB
     Indication: Breast cancer female
     Dosage: FREQUENCY : TWICE A DAY;?
     Route: 048
  2. ACETAMINOPHEN [Concomitant]
  3. AJOVY [Concomitant]
  4. ARICEPT [Concomitant]
  5. BISACODYL [Concomitant]
  6. CYMBALTA [Concomitant]
  7. ESGIC [Concomitant]
  8. FASLODEX [Concomitant]
  9. FLUTDROCORTISONE [Concomitant]
  10. IMITREX [Concomitant]
  11. MULTIVITAMIN [Concomitant]
  12. ONDANSETRON [Concomitant]
  13. OXYCODONE [Concomitant]
  14. PROCHLORPERAZINE [Concomitant]
  15. ROSUVASTATIN [Concomitant]

REACTIONS (3)
  - Platelet count decreased [None]
  - White blood cell count decreased [None]
  - Therapy interrupted [None]
